FAERS Safety Report 5527577-7 (Version None)
Quarter: 2007Q4

REPORT INFORMATION
  Report Type: 
  Country: None (occurrence: None)
  Receive Date: 20071128
  Receipt Date: 20071119
  Transmission Date: 20080405
  Serious: Yes (Other)
  Sender: FDA-Public Use
  Company Number: DE-BRISTOL-MYERS SQUIBB COMPANY-13900535

PATIENT
  Age: 39 Year
  Sex: Female
  Weight: 58 kg

DRUGS (2)
  1. REYATAZ [Suspect]
     Indication: HIV INFECTION
     Dates: start: 20040624, end: 20070814
  2. KIVEXA [Suspect]
     Indication: HIV INFECTION
     Dosage: ABACAVIR 600MG, LAMIVUDINE 300MG
     Dates: start: 20060517, end: 20070814

REACTIONS (1)
  - HEPATITIS TOXIC [None]
